FAERS Safety Report 12787347 (Version 1)
Quarter: 2016Q3

REPORT INFORMATION
  Report Type: Report from Study
  Country: ES (occurrence: ES)
  Receive Date: 20160928
  Receipt Date: 20160928
  Transmission Date: 20161109
  Serious: Yes (Death, Other)
  Sender: FDA-Public Use
  Company Number: ES-BRISTOL-MYERS SQUIBB COMPANY-BMS-2016-078799

PATIENT
  Age: 58 Year
  Sex: Female

DRUGS (2)
  1. DASATINIB [Suspect]
     Active Substance: DASATINIB
     Indication: GRAFT VERSUS HOST DISEASE
     Dosage: 50 MG, UNK
     Route: 065
     Dates: start: 200907
  2. DASATINIB [Suspect]
     Active Substance: DASATINIB
     Dosage: 100 MG, UNK
     Route: 065

REACTIONS (2)
  - Product use issue [Unknown]
  - Chronic graft versus host disease [Fatal]
